FAERS Safety Report 8177476-X (Version None)
Quarter: 2012Q1

REPORT INFORMATION
  Report Type: 
  Country: None (occurrence: None)
  Receive Date: 20120301
  Receipt Date: 20120220
  Transmission Date: 20120608
  Serious: Yes (Hospitalization)
  Sender: FDA-Public Use
  Company Number: ES-ABBOTT-12P-144-0907002-03

PATIENT
  Age: 33 Year
  Sex: Male

DRUGS (15)
  1. BUDESONIDE [Concomitant]
     Indication: CROHN'S DISEASE
     Dates: start: 20100111
  2. METAMIZOLE [Concomitant]
     Indication: PYREXIA
     Dates: start: 20100514, end: 20100516
  3. HUMIRA [Concomitant]
     Route: 058
  4. ACETAMINOPHEN [Concomitant]
     Indication: PYREXIA
     Route: 042
     Dates: start: 20100107, end: 20100116
  5. METRONIDAZOLE [Concomitant]
     Indication: CROHN'S DISEASE
  6. METRONIDAZOLE [Concomitant]
     Indication: PYREXIA
     Dates: start: 20100514, end: 20100519
  7. VENOFER [Concomitant]
     Indication: ANAEMIA
     Dates: start: 20100111, end: 20100116
  8. ACETAMINOPHEN [Concomitant]
     Route: 042
     Dates: start: 20100514, end: 20100519
  9. ACETAMINOPHEN [Concomitant]
     Route: 042
     Dates: start: 20100525, end: 20100527
  10. METAMIZOLE [Concomitant]
     Route: 042
     Dates: start: 20100525, end: 20100527
  11. HUMIRA [Suspect]
     Indication: CROHN'S DISEASE
     Route: 058
     Dates: start: 20090603
  12. HUMIRA [Concomitant]
     Indication: CROHN'S DISEASE
     Dosage: BASELINE
     Route: 058
     Dates: start: 20090317, end: 20090317
  13. HUMIRA [Concomitant]
     Dosage: WEEK 2
     Route: 058
  14. METRONIDAZOLE [Concomitant]
     Indication: EVIDENCE BASED TREATMENT
  15. ACYCLOVIR [Concomitant]
     Indication: ORAL HERPES
     Route: 042
     Dates: start: 20100527, end: 20100602

REACTIONS (1)
  - PYREXIA [None]
